FAERS Safety Report 7438837-7 (Version None)
Quarter: 2011Q2

REPORT INFORMATION
  Report Type: 
  Country: None (occurrence: None)
  Receive Date: 20110426
  Receipt Date: 20110419
  Transmission Date: 20111010
  Serious: Yes (Hospitalization, Other)
  Sender: FDA-Public Use
  Company Number: US-SANOFI-AVENTIS-2011SA024474

PATIENT
  Age: 48 Year
  Sex: Male

DRUGS (4)
  1. GLUCOPHAGE [Concomitant]
  2. LANTUS [Suspect]
     Dosage: DOSE:7 UNIT(S)
     Route: 058
  3. ACTOS [Concomitant]
  4. NOVOLOG [Concomitant]

REACTIONS (3)
  - SKIN ULCER [None]
  - THROMBOSIS [None]
  - DYSPEPSIA [None]
